FAERS Safety Report 15892181 (Version 1)
Quarter: 2019Q1

REPORT INFORMATION
  Report Type: Report from Study
  Country: US (occurrence: US)
  Receive Date: 20190130
  Receipt Date: 20190130
  Transmission Date: 20190417
  Serious: No
  Sender: FDA-Public Use
  Company Number: US-EXELIXIS-CABO-18014991

PATIENT
  Sex: Female

DRUGS (4)
  1. COMETRIQ [Suspect]
     Active Substance: CABOZANTINIB S-MALATE
     Dosage: 60 MG, QD FOR 2 WEEKS
     Route: 048
     Dates: start: 20180627
  2. COMETRIQ [Suspect]
     Active Substance: CABOZANTINIB S-MALATE
     Indication: THYROID CANCER
     Dosage: 40 MG, QD FOR 2 WEEKS
     Route: 048
  3. COMETRIQ [Suspect]
     Active Substance: CABOZANTINIB S-MALATE
     Dosage: 80 MG, QOD
     Route: 048
     Dates: start: 2018
  4. COMETRIQ [Suspect]
     Active Substance: CABOZANTINIB S-MALATE
     Dosage: 100 MG, QD
     Route: 048
     Dates: start: 2018

REACTIONS (10)
  - Asthenia [Unknown]
  - Adverse drug reaction [Unknown]
  - Gait disturbance [Unknown]
  - Scab [Unknown]
  - Somnolence [Unknown]
  - Oral mucosal blistering [Unknown]
  - Peripheral swelling [Recovered/Resolved]
  - Dry mouth [Unknown]
  - Palmar erythema [Recovered/Resolved]
  - Oral pain [Unknown]
